FAERS Safety Report 24080458 (Version 1)
Quarter: 2024Q3

REPORT INFORMATION
  Report Type: Spontaneous
  Country: US (occurrence: None)
  Receive Date: 20240711
  Receipt Date: 20240711
  Transmission Date: 20241016
  Serious: Yes (Hospitalization, Other)
  Sender: ASTRAZENECA
  Company Number: 2024A156745

PATIENT
  Age: 53 Year
  Sex: Male
  Weight: 73 kg

DRUGS (4)
  1. ROSUVASTATIN [Interacting]
     Active Substance: ROSUVASTATIN
     Route: 048
  2. BUSPIRONE [Interacting]
     Active Substance: BUSPIRONE HYDROCHLORIDE
  3. TACROLIMUS [Interacting]
     Active Substance: TACROLIMUS
     Dosage: EXTENDED RELEASE
  4. PHENYTOIN [Interacting]
     Active Substance: PHENYTOIN
     Dosage: FOR 4 DOSES.
     Route: 048

REACTIONS (2)
  - Drug interaction [Unknown]
  - Toxicity to various agents [Unknown]
